FAERS Safety Report 4962745-4 (Version None)
Quarter: 2006Q2

REPORT INFORMATION
  Report Type: 
  Country: None (occurrence: None)
  Receive Date: 20060404
  Receipt Date: 20051205
  Transmission Date: 20061013
  Serious: Yes (Hospitalization)
  Sender: FDA-Public Use
  Company Number: US-MERCK-0512USA00821

PATIENT
  Age: 73 Year
  Sex: Male
  Weight: 64 kg

DRUGS (2)
  1. VIOXX [Suspect]
     Indication: ARTHRITIS
     Route: 048
     Dates: start: 20030501, end: 20040701
  2. NORVASC [Concomitant]
     Indication: HYPERTENSION
     Route: 065

REACTIONS (15)
  - AMPUTATION [None]
  - ANXIETY [None]
  - ARTERIAL OCCLUSIVE DISEASE [None]
  - ARTERIOSCLEROSIS CORONARY ARTERY [None]
  - BLOOD CHOLESTEROL INCREASED [None]
  - CARDIAC VALVE DISEASE [None]
  - CEREBROVASCULAR ACCIDENT [None]
  - CORONARY ARTERY DISEASE [None]
  - GOUT [None]
  - HYPERTENSION [None]
  - MYOCARDIAL INFARCTION [None]
  - REFUSAL OF TREATMENT BY PATIENT [None]
  - RHONCHI [None]
  - SLEEP APNOEA SYNDROME [None]
  - SWELLING [None]
